FAERS Safety Report 15653701 (Version 1)
Quarter: 2018Q4

REPORT INFORMATION
  Report Type: Report from Study
  Country: CO (occurrence: CO)
  Receive Date: 20181124
  Receipt Date: 20181124
  Transmission Date: 20190205
  Serious: Yes (Other)
  Sender: FDA-Public Use
  Company Number: PHHY2018CO154650

PATIENT
  Sex: Male
  Weight: 60 kg

DRUGS (2)
  1. OMEPRAZOLE. [Concomitant]
     Active Substance: OMEPRAZOLE
     Indication: GASTROINTESTINAL DISORDER PROPHYLAXIS
     Dosage: QD BEGINNING OF 2018
     Route: 048
  2. TASIGNA [Suspect]
     Active Substance: NILOTINIB
     Indication: CHRONIC MYELOID LEUKAEMIA
     Dosage: 400 MG, BID
     Route: 048
     Dates: start: 2012

REACTIONS (5)
  - Gastrointestinal inflammation [Unknown]
  - Chronic myeloid leukaemia recurrent [Unknown]
  - Weight decreased [Unknown]
  - Splenomegaly [Unknown]
  - Drug ineffective [Unknown]
